FAERS Safety Report 8555075-5 (Version None)
Quarter: 2012Q3

REPORT INFORMATION
  Report Type: 
  Country: None (occurrence: None)
  Receive Date: 20120731
  Receipt Date: 20120725
  Transmission Date: 20120928
  Serious: Yes (Life-Threatening, Hospitalization)
  Sender: FDA-Public Use
  Company Number: CA-ABBOTT-12P-028-0917310-00

PATIENT
  Age: 58 Year
  Sex: Female
  Weight: 53.5 kg

DRUGS (4)
  1. HUMIRA [Suspect]
     Indication: PRODUCT USED FOR UNKNOWN INDICATION
     Route: 058
  2. DICLOFENAC SODIUM [Concomitant]
     Indication: PRODUCT USED FOR UNKNOWN INDICATION
     Route: 048
  3. METHOTREXATE [Concomitant]
     Indication: PRODUCT USED FOR UNKNOWN INDICATION
     Route: 048
  4. MISOPROSTOL [Concomitant]
     Indication: PRODUCT USED FOR UNKNOWN INDICATION

REACTIONS (6)
  - ABDOMINAL PAIN [None]
  - VOMITING [None]
  - GASTROINTESTINAL MOTILITY DISORDER [None]
  - HEPATIC NEOPLASM MALIGNANT [None]
  - SMALL INTESTINAL OBSTRUCTION [None]
  - METASTATIC NEOPLASM [None]
